FAERS Safety Report 5010323-3 (Version None)
Quarter: 2006Q2

REPORT INFORMATION
  Report Type: 
  Country: None (occurrence: None)
  Receive Date: 20060404
  Receipt Date: 20051104
  Transmission Date: 20061013
  Serious: Yes (Other)
  Sender: FDA-Public Use
  Company Number: USA0511112814

PATIENT
  Age: 46 Year
  Sex: Female

DRUGS (6)
  1. CYMBALTA [Suspect]
     Indication: DEPRESSION
     Dosage: 60 MG, DAILY (1/D)
     Dates: start: 20051001
  2. EFFEXOR XR [Concomitant]
  3. HYDROCODONE BITARTRATE [Concomitant]
  4. IBUPROFEN [Concomitant]
  5. CALCIUM (CALCIUM) [Concomitant]
  6. MAGNESIUM (MAGNESIUM) [Concomitant]

REACTIONS (8)
  - CRYING [None]
  - DIFFICULTY IN WALKING [None]
  - FEELING ABNORMAL [None]
  - MEDICATION ERROR [None]
  - MUSCLE SPASMS [None]
  - MUSCLE TWITCHING [None]
  - NERVOUSNESS [None]
  - PAIN IN EXTREMITY [None]
